FAERS Safety Report 17565962 (Version 1)
Quarter: 2020Q1

REPORT INFORMATION
  Report Type: Spontaneous
  Country: US (occurrence: US)
  Receive Date: 20200320
  Receipt Date: 20200320
  Transmission Date: 20200409
  Serious: Yes (Other)
  Sender: FDA-Public Use
  Company Number: US-SA-2020SA068364

PATIENT
  Sex: Male

DRUGS (1)
  1. ZANTAC [Suspect]
     Active Substance: RANITIDINE HYDROCHLORIDE
     Dosage: FOR ABOUT 6 YEARS, THREE TO FOUR DAYS A WEEK
     Dates: start: 2010, end: 2016

REACTIONS (2)
  - Anxiety [Unknown]
  - Prostate cancer [Unknown]

NARRATIVE: CASE EVENT DATE: 201611
